FAERS Safety Report 21081923 (Version 8)
Quarter: 2023Q1

REPORT INFORMATION
  Report Type: Report from Study
  Country: CA (occurrence: CA)
  Receive Date: 20220714
  Receipt Date: 20230110
  Transmission Date: 20230418
  Serious: Yes (Other)
  Sender: FDA-Public Use
  Company Number: CA-TAKEDA-2022TUS046684

PATIENT
  Age: 39 Year
  Sex: Male

DRUGS (7)
  1. VEDOLIZUMAB [Suspect]
     Active Substance: VEDOLIZUMAB
     Indication: Colitis ulcerative
     Dosage: 300 MILLIGRAM
     Route: 042
     Dates: start: 20220128
  2. VEDOLIZUMAB [Suspect]
     Active Substance: VEDOLIZUMAB
     Dosage: 300 MILLIGRAM, Q4WEEKS
     Route: 042
     Dates: start: 20220819
  3. VEDOLIZUMAB [Suspect]
     Active Substance: VEDOLIZUMAB
     Dosage: 300 MILLIGRAM, Q4WEEKS
     Route: 042
  4. VEDOLIZUMAB [Suspect]
     Active Substance: VEDOLIZUMAB
     Dosage: 300 MILLIGRAM, Q4WEEKS
     Route: 042
     Dates: end: 20221111
  5. PREDNISONE [Concomitant]
     Active Substance: PREDNISONE
     Dosage: 40 MILLIGRAM
     Dates: start: 20211221
  6. IRON [Concomitant]
     Active Substance: IRON
     Dosage: UNK UNK, BID
     Dates: start: 202111
  7. CORTISONE [Concomitant]
     Active Substance: CORTISONE
     Dosage: 35 MILLIGRAM
     Dates: start: 202111

REACTIONS (13)
  - Colitis ulcerative [Unknown]
  - Clostridium difficile infection [Recovered/Resolved]
  - Haematuria [Not Recovered/Not Resolved]
  - Eye oedema [Not Recovered/Not Resolved]
  - Diarrhoea haemorrhagic [Unknown]
  - Haematochezia [Unknown]
  - Rash macular [Not Recovered/Not Resolved]
  - Frequent bowel movements [Unknown]
  - Abdominal pain [Not Recovered/Not Resolved]
  - Acne [Unknown]
  - Pruritus [Not Recovered/Not Resolved]
  - Therapeutic reaction time decreased [Unknown]
  - Off label use [Unknown]

NARRATIVE: CASE EVENT DATE: 20220601
